FAERS Safety Report 23466451 (Version 1)
Quarter: 2024Q1

REPORT INFORMATION
  Report Type: Spontaneous
  Country: US (occurrence: None)
  Receive Date: 20240131
  Receipt Date: 20240131
  Transmission Date: 20240409
  Serious: Yes (Life-Threatening)
  Sender: FDA-Public Use
  Company Number: None

PATIENT
  Age: 50 Year
  Sex: Male
  Weight: 78.75 kg

DRUGS (7)
  1. PROMETHAZINE [Suspect]
     Active Substance: PROMETHAZINE HYDROCHLORIDE
     Indication: Vomiting
     Dosage: AS NEEDED?
     Route: 054
     Dates: start: 20240130, end: 20240130
  2. PROMETHAZINE [Suspect]
     Active Substance: PROMETHAZINE HYDROCHLORIDE
     Indication: Diarrhoea
  3. PROMETHAZINE [Suspect]
     Active Substance: PROMETHAZINE HYDROCHLORIDE
     Indication: Vomiting
     Dosage: AS NEEDED  RECTAL
     Route: 054
     Dates: start: 20240130, end: 20240130
  4. PROMETHAZINE [Suspect]
     Active Substance: PROMETHAZINE HYDROCHLORIDE
     Indication: Diarrhoea
  5. ALLEGRA [Concomitant]
     Active Substance: FEXOFENADINE HYDROCHLORIDE
  6. Primatine mist [Concomitant]
  7. EPIPEN [Concomitant]

REACTIONS (6)
  - Illness [None]
  - Vomiting [None]
  - Diarrhoea [None]
  - Dehydration [None]
  - Memory impairment [None]
  - Anaphylactic reaction [None]

NARRATIVE: CASE EVENT DATE: 20240130
